FAERS Safety Report 9241757 (Version 2)
Quarter: 2013Q3

REPORT INFORMATION
  Report Type: Spontaneous
  Country: BR (occurrence: BR)
  Receive Date: 20130419
  Receipt Date: 20130816
  Transmission Date: 20140515
  Serious: Yes (Other)
  Sender: FDA-Public Use
  Company Number: BR-GENZYME-CERZ-1002917

PATIENT
  Age: 29 Year
  Sex: Female

DRUGS (6)
  1. CEREZYME [Suspect]
     Indication: GAUCHER^S DISEASE
     Dosage: UNK
     Route: 042
     Dates: start: 1999
  2. HALDOL [Concomitant]
     Indication: PSYCHOTIC DISORDER
     Dosage: 2.5 MG, BID
     Route: 065
     Dates: start: 201302
  3. PROMETHAZINE [Concomitant]
     Indication: PSYCHOTIC DISORDER
     Dosage: 25 MG, BID
     Route: 065
     Dates: start: 201302
  4. LORAZEPAM [Concomitant]
     Indication: PSYCHOTIC DISORDER
     Dosage: 1 MG, BID
     Route: 065
     Dates: start: 201302
  5. CIPROFLOXACIN [Concomitant]
     Indication: URINARY TRACT INFECTION
     Dosage: 500 MG, BID
     Route: 065
     Dates: start: 201302
  6. LEXOTAN [Concomitant]
     Indication: PSYCHOTIC DISORDER
     Dosage: 6 MG, QD
     Route: 065
     Dates: start: 201302

REACTIONS (5)
  - Pancytopenia [Recovered/Resolved]
  - Dengue fever [Recovered/Resolved]
  - Ovarian disorder [Recovered/Resolved]
  - Acute psychosis [Recovered/Resolved]
  - Maternal exposure during pregnancy [Unknown]
